FAERS Safety Report 21698331 (Version 2)
Quarter: 2022Q4

REPORT INFORMATION
  Report Type: Report from Study
  Country: US (occurrence: US)
  Receive Date: 20221208
  Receipt Date: 20221210
  Transmission Date: 20230112
  Serious: No
  Sender: FDA-Public Use
  Company Number: US-ABBVIE-4225184

PATIENT
  Sex: Male

DRUGS (4)
  1. VENCLEXTA [Suspect]
     Active Substance: VENETOCLAX
     Indication: Acute lymphocytic leukaemia
     Dosage: ONE 50MG X7DAYS?FORM STRENGTH: 50MG
     Route: 048
  2. VENCLEXTA [Suspect]
     Active Substance: VENETOCLAX
     Indication: Acute lymphocytic leukaemia
     Dosage: TWO 100MG TABS X7DAYS WITH FOOD?FORM STRENGTH: 100MG
     Route: 048
  3. VENCLEXTA [Suspect]
     Active Substance: VENETOCLAX
     Indication: Acute lymphocytic leukaemia
     Dosage: TWO 10MG TABS?FORM STRENGTH: 10MG
     Route: 048
  4. VENCLEXTA [Suspect]
     Active Substance: VENETOCLAX
     Indication: Acute lymphocytic leukaemia
     Dosage: ONE 100MG TAB X7DAYS?FORM STRENGTH: 100MG
     Route: 048

REACTIONS (5)
  - Cough [Recovering/Resolving]
  - Rash [Recovering/Resolving]
  - Skin exfoliation [Unknown]
  - Lymphadenopathy [Unknown]
  - Dry skin [Unknown]
